FAERS Safety Report 6149740-7 (Version None)
Quarter: 2009Q2

REPORT INFORMATION
  Report Type: 
  Country: None (occurrence: None)
  Receive Date: 20090407
  Receipt Date: 20090407
  Transmission Date: 20091009
  Serious: Yes (Other)
  Sender: FDA-Public Use
  Company Number: None

PATIENT
  Age: 67 Year
  Sex: Male
  Weight: 132.9039 kg

DRUGS (1)
  1. TRILIPIX [Suspect]
     Indication: BLOOD CHOLESTEROL
     Dosage: 135 DAILY PO
     Route: 048
     Dates: start: 20090228, end: 20090405

REACTIONS (5)
  - CONDITION AGGRAVATED [None]
  - HYPERTENSION [None]
  - MUSCLE SPASMS [None]
  - OEDEMA PERIPHERAL [None]
  - UNEVALUABLE EVENT [None]
